FAERS Safety Report 4983283-9 (Version None)
Quarter: 2006Q2

REPORT INFORMATION
  Report Type: 
  Country: None (occurrence: None)
  Receive Date: 20060419
  Receipt Date: 20060410
  Transmission Date: 20061013
  Serious: Yes (Death, Other)
  Sender: FDA-Public Use
  Company Number: 2006040409

PATIENT
  Age: 83 Year
  Sex: Male
  Weight: 95.3 kg

DRUGS (8)
  1. LYRICA [Suspect]
     Indication: NEUROPATHY PERIPHERAL
     Dosage: 75 MG (75 MG, 1 IN 1 D), ORAL
     Route: 048
     Dates: start: 20060228, end: 20060303
  2. ADVAIR DISKUS 100/50 [Concomitant]
  3. MICARDIS [Concomitant]
  4. LOSEC (OMEPRAZOLE) [Concomitant]
  5. QUININE SULFATE [Concomitant]
  6. ATROVENT [Concomitant]
  7. LIPITOR [Concomitant]
  8. LASIX [Concomitant]

REACTIONS (1)
  - SUDDEN DEATH [None]
